FAERS Safety Report 13735915 (Version 3)
Quarter: 2017Q3

REPORT INFORMATION
  Report Type: Report from Study
  Country: US (occurrence: US)
  Receive Date: 20170710
  Receipt Date: 20170720
  Transmission Date: 20171127
  Serious: Yes (Other)
  Sender: FDA-Public Use
  Company Number: US-AMGEN-USASL2017101335

PATIENT
  Age: 27 Year
  Sex: Female

DRUGS (2)
  1. ENBREL [Suspect]
     Active Substance: ETANERCEPT
     Indication: PSORIATIC ARTHROPATHY
     Dosage: 50 MG, QWK
     Route: 065
  2. ENBREL [Suspect]
     Active Substance: ETANERCEPT
     Dosage: 50 MG, QWK
     Route: 065

REACTIONS (5)
  - Drug effect decreased [Unknown]
  - Drug dose omission [Unknown]
  - Psoriatic arthropathy [Not Recovered/Not Resolved]
  - Unevaluable event [Unknown]
  - Anxiety [Unknown]

NARRATIVE: CASE EVENT DATE: 2017
